FAERS Safety Report 25202233 (Version 4)
Quarter: 2025Q2

REPORT INFORMATION
  Report Type: Report from Study
  Country: DE (occurrence: DE)
  Receive Date: 20250416
  Receipt Date: 20250507
  Transmission Date: 20250717
  Serious: Yes (Hospitalization)
  Sender: SANOFI AVENTIS
  Company Number: DE-SA-2025SA107370

PATIENT
  Age: 70 Year
  Sex: Male

DRUGS (74)
  1. ISATUXIMAB [Suspect]
     Active Substance: ISATUXIMAB
     Indication: Plasma cell myeloma refractory
     Dosage: 10 MG, QW
     Dates: start: 20230423, end: 20230516
  2. ISATUXIMAB [Suspect]
     Active Substance: ISATUXIMAB
     Dosage: 10 MG, BIW
     Dates: start: 20230522, end: 20230620
  3. ISATUXIMAB [Suspect]
     Active Substance: ISATUXIMAB
     Dosage: 10 MG, BIW
     Dates: start: 20230626, end: 20230719
  4. ISATUXIMAB [Suspect]
     Active Substance: ISATUXIMAB
     Dosage: 10 MG, BIW
     Dates: start: 20230725, end: 20230817
  5. ISATUXIMAB [Suspect]
     Active Substance: ISATUXIMAB
     Dosage: 10 MG, BIW
     Dates: start: 20230822, end: 20230914
  6. ISATUXIMAB [Suspect]
     Active Substance: ISATUXIMAB
     Dosage: 10 MG, BIW
     Dates: start: 20230919, end: 20231012
  7. ISATUXIMAB [Suspect]
     Active Substance: ISATUXIMAB
     Dosage: 10 MG, BIW
     Dates: start: 20231018, end: 20231110
  8. ISATUXIMAB [Suspect]
     Active Substance: ISATUXIMAB
     Dosage: 10 MG, BIW
     Dates: start: 20231116, end: 20231209
  9. ISATUXIMAB [Suspect]
     Active Substance: ISATUXIMAB
     Dosage: 10 MG, BIW
     Dates: start: 20231214, end: 20240106
  10. ISATUXIMAB [Suspect]
     Active Substance: ISATUXIMAB
     Dosage: 10 MG, BIW
     Dates: start: 20240111, end: 20240203
  11. ISATUXIMAB [Suspect]
     Active Substance: ISATUXIMAB
     Dosage: 10 MG, BIW
     Dates: start: 20240208, end: 20240302
  12. ISATUXIMAB [Suspect]
     Active Substance: ISATUXIMAB
     Dosage: 10 MG, BIW
     Dates: start: 20240307, end: 20240330
  13. ISATUXIMAB [Suspect]
     Active Substance: ISATUXIMAB
     Dosage: 10 MG, BIW
     Dates: start: 20240404, end: 20240425
  14. ISATUXIMAB [Suspect]
     Active Substance: ISATUXIMAB
     Dosage: 10 MG, BIW
     Dates: start: 20240502, end: 20240525
  15. ISATUXIMAB [Suspect]
     Active Substance: ISATUXIMAB
     Dosage: 10 MG, BIW
     Dates: start: 20240529, end: 20240621
  16. ISATUXIMAB [Suspect]
     Active Substance: ISATUXIMAB
     Dosage: 10 MG, BIW
     Dates: start: 20240626, end: 20240719
  17. ISATUXIMAB [Suspect]
     Active Substance: ISATUXIMAB
     Dosage: 10 MG, BIW
     Dates: start: 20240724, end: 20240816
  18. ISATUXIMAB [Suspect]
     Active Substance: ISATUXIMAB
     Dosage: 10 MG, BIW
     Dates: start: 20240821, end: 20240913
  19. ISATUXIMAB [Suspect]
     Active Substance: ISATUXIMAB
     Dosage: 10 MG, BIW
     Dates: start: 20240917, end: 20241010
  20. ISATUXIMAB [Suspect]
     Active Substance: ISATUXIMAB
     Dosage: 10 MG, BIW
     Dates: start: 20241015, end: 20241107
  21. ISATUXIMAB [Suspect]
     Active Substance: ISATUXIMAB
     Dosage: 10 MG, BIW
     Dates: start: 20241112, end: 20241205
  22. ISATUXIMAB [Suspect]
     Active Substance: ISATUXIMAB
     Dosage: 10 MG, BIW
     Dates: start: 20241210, end: 20250102
  23. DEXAMETHASONE [Suspect]
     Active Substance: DEXAMETHASONE
     Indication: Plasma cell myeloma refractory
     Dates: start: 20230424, end: 20230516
  24. DEXAMETHASONE [Suspect]
     Active Substance: DEXAMETHASONE
     Dates: start: 20230522, end: 20230620
  25. DEXAMETHASONE [Suspect]
     Active Substance: DEXAMETHASONE
     Dates: start: 20230626, end: 20230719
  26. DEXAMETHASONE [Suspect]
     Active Substance: DEXAMETHASONE
     Dates: start: 20230725, end: 20230817
  27. DEXAMETHASONE [Suspect]
     Active Substance: DEXAMETHASONE
     Dates: start: 20230822, end: 20230914
  28. DEXAMETHASONE [Suspect]
     Active Substance: DEXAMETHASONE
     Dates: start: 20230919, end: 20231012
  29. DEXAMETHASONE [Suspect]
     Active Substance: DEXAMETHASONE
     Dates: start: 20231018, end: 20231110
  30. DEXAMETHASONE [Suspect]
     Active Substance: DEXAMETHASONE
     Dates: start: 20231116, end: 20231209
  31. DEXAMETHASONE [Suspect]
     Active Substance: DEXAMETHASONE
     Dates: start: 20231214, end: 20240106
  32. DEXAMETHASONE [Suspect]
     Active Substance: DEXAMETHASONE
     Dates: start: 20240111, end: 20240203
  33. DEXAMETHASONE [Suspect]
     Active Substance: DEXAMETHASONE
     Dates: start: 20240208, end: 20240302
  34. DEXAMETHASONE [Suspect]
     Active Substance: DEXAMETHASONE
     Dates: start: 20240307, end: 20240330
  35. DEXAMETHASONE [Suspect]
     Active Substance: DEXAMETHASONE
     Dates: start: 20240404, end: 20240425
  36. DEXAMETHASONE [Suspect]
     Active Substance: DEXAMETHASONE
     Dates: start: 20240502, end: 20240525
  37. DEXAMETHASONE [Suspect]
     Active Substance: DEXAMETHASONE
     Dates: start: 20240529, end: 20240621
  38. DEXAMETHASONE [Suspect]
     Active Substance: DEXAMETHASONE
     Dates: start: 20240626, end: 20240719
  39. DEXAMETHASONE [Suspect]
     Active Substance: DEXAMETHASONE
     Dates: start: 20240724, end: 20240816
  40. DEXAMETHASONE [Suspect]
     Active Substance: DEXAMETHASONE
     Dates: start: 20240821, end: 20240913
  41. DEXAMETHASONE [Suspect]
     Active Substance: DEXAMETHASONE
     Dates: start: 20240917, end: 20241010
  42. DEXAMETHASONE [Suspect]
     Active Substance: DEXAMETHASONE
     Dates: start: 20241015, end: 20241107
  43. DEXAMETHASONE [Suspect]
     Active Substance: DEXAMETHASONE
     Dates: start: 20241112, end: 20241205
  44. DEXAMETHASONE [Suspect]
     Active Substance: DEXAMETHASONE
     Dates: start: 20241210, end: 20250102
  45. CARFILZOMIB [Suspect]
     Active Substance: CARFILZOMIB
     Indication: Plasma cell myeloma refractory
     Dates: start: 20230424, end: 20230425
  46. CARFILZOMIB [Suspect]
     Active Substance: CARFILZOMIB
     Dates: start: 20230502, end: 20230516
  47. CARFILZOMIB [Suspect]
     Active Substance: CARFILZOMIB
     Dates: start: 20240307, end: 20240330
  48. CARFILZOMIB [Suspect]
     Active Substance: CARFILZOMIB
     Dates: start: 20230626, end: 20230719
  49. CARFILZOMIB [Suspect]
     Active Substance: CARFILZOMIB
     Dates: start: 20230725, end: 20230817
  50. CARFILZOMIB [Suspect]
     Active Substance: CARFILZOMIB
     Dates: start: 20230822, end: 20230914
  51. CARFILZOMIB [Suspect]
     Active Substance: CARFILZOMIB
     Dates: start: 20230919, end: 20231012
  52. CARFILZOMIB [Suspect]
     Active Substance: CARFILZOMIB
     Dates: start: 20231116, end: 20231209
  53. CARFILZOMIB [Suspect]
     Active Substance: CARFILZOMIB
     Dates: start: 20231214, end: 20240106
  54. CARFILZOMIB [Suspect]
     Active Substance: CARFILZOMIB
     Dates: start: 20240111, end: 20240203
  55. CARFILZOMIB [Suspect]
     Active Substance: CARFILZOMIB
     Dates: start: 20240208, end: 20240302
  56. CARFILZOMIB [Suspect]
     Active Substance: CARFILZOMIB
     Dates: start: 20240404, end: 20240425
  57. CARFILZOMIB [Suspect]
     Active Substance: CARFILZOMIB
     Dates: start: 20240502, end: 20240525
  58. CARFILZOMIB [Suspect]
     Active Substance: CARFILZOMIB
     Dates: start: 20240529, end: 20240621
  59. CARFILZOMIB [Suspect]
     Active Substance: CARFILZOMIB
     Dates: start: 20240626, end: 20240719
  60. CARFILZOMIB [Suspect]
     Active Substance: CARFILZOMIB
     Dates: start: 20240724, end: 20240816
  61. CARFILZOMIB [Suspect]
     Active Substance: CARFILZOMIB
     Dates: start: 20240821, end: 20240913
  62. CARFILZOMIB [Suspect]
     Active Substance: CARFILZOMIB
     Dates: start: 20240917, end: 20241010
  63. CARFILZOMIB [Suspect]
     Active Substance: CARFILZOMIB
     Dates: start: 20241015, end: 20241107
  64. CARFILZOMIB [Suspect]
     Active Substance: CARFILZOMIB
     Dates: start: 20241112, end: 20241205
  65. CARFILZOMIB [Suspect]
     Active Substance: CARFILZOMIB
     Dates: start: 20241210, end: 20250102
  66. CARFILZOMIB [Suspect]
     Active Substance: CARFILZOMIB
     Dates: start: 20231018, end: 20231110
  67. CARFILZOMIB [Suspect]
     Active Substance: CARFILZOMIB
     Dates: start: 20230522, end: 20230620
  68. ACETAMINOPHEN [Concomitant]
     Active Substance: ACETAMINOPHEN
     Indication: Premedication
  69. BISOPROLOL [Concomitant]
     Active Substance: BISOPROLOL
     Indication: Hypertension
  70. CYANOCOBALAMIN [Concomitant]
     Active Substance: CYANOCOBALAMIN
     Indication: Vitamin B12 deficiency
     Dates: start: 20230412
  71. DENOSUMAB [Concomitant]
     Active Substance: DENOSUMAB
     Indication: Hypocalcaemia
     Dates: start: 20230313
  72. TAMSULOSIN [Concomitant]
     Active Substance: TAMSULOSIN
  73. ACYCLOVIR [Concomitant]
     Active Substance: ACYCLOVIR
     Indication: Prophylaxis
  74. SULFAMETHOXAZOLE\TRIMETHOPRIM [Concomitant]
     Active Substance: SULFAMETHOXAZOLE\TRIMETHOPRIM
     Indication: Prophylaxis

REACTIONS (1)
  - Pneumococcal bacteraemia [Recovered/Resolved]

NARRATIVE: CASE EVENT DATE: 20250113
